FAERS Safety Report 4796412-7 (Version None)
Quarter: 2005Q4

REPORT INFORMATION
  Report Type: 
  Country: None (occurrence: None)
  Receive Date: 20051006
  Receipt Date: 20051006
  Transmission Date: 20060501
  Serious: Yes (Hospitalization, Other)
  Sender: FDA-Public Use
  Company Number: None

PATIENT
  Sex: Male
  Weight: 97.7 kg

DRUGS (4)
  1. CAPECITABINE [Suspect]
     Indication: RECTAL CANCER
     Dosage: SEE IMAGE
     Dates: start: 20050619, end: 20050728
  2. CAPECITABINE [Suspect]
     Indication: RECTAL CANCER
     Dosage: SEE IMAGE
     Dates: start: 20050914
  3. OXALIPLATIN [Suspect]
     Dosage: SEE IMAGE
     Dates: start: 20050620, end: 20050718
  4. OXALIPLATIN [Suspect]
     Dosage: SEE IMAGE
     Dates: start: 20050914

REACTIONS (3)
  - BLOOD CREATININE INCREASED [None]
  - BLOOD POTASSIUM INCREASED [None]
  - POST PROCEDURAL COMPLICATION [None]
